FAERS Safety Report 10257365 (Version 1)
Quarter: 2014Q2

REPORT INFORMATION
  Report Type: Spontaneous
  Country: GB (occurrence: None)
  Receive Date: 20140620
  Receipt Date: 20140620
  Transmission Date: 20141212
  Serious: Yes (Hospitalization, Other)
  Sender: FDA-Public Use
  Company Number: AUR-APL-2014-06494

PATIENT
  Age: 63 Year
  Sex: Male

DRUGS (4)
  1. RIBAVIRIN (RIBAVIRIN) [Suspect]
     Indication: HEPATITIS C
     Route: 048
     Dates: start: 20140116, end: 20140414
  2. PEGINTERFERON ALFA-2A (PEGINTERFERON ALFA-2A) [Suspect]
     Indication: HEPATITIS C
     Route: 058
     Dates: start: 20140116, end: 20140414
  3. VICTRELIS (BOCEPREVIR) [Suspect]
     Indication: HEPATITIS C
     Route: 048
     Dates: start: 20140227, end: 20140414
  4. INSULIN (INSULIN) [Concomitant]

REACTIONS (2)
  - Cyanosis [None]
  - Poor peripheral circulation [None]
